FAERS Safety Report 9408397 (Version 1)
Quarter: 2013Q3

REPORT INFORMATION
  Report Type: Spontaneous
  Country: US (occurrence: None)
  Receive Date: 20130716
  Receipt Date: 20130716
  Transmission Date: 20140515
  Serious: Yes (Hospitalization)
  Sender: FDA-Public Use
  Company Number: 2013P1011300

PATIENT
  Age: 17 Year
  Sex: Male

DRUGS (3)
  1. SULFAMETHOXAZOLE AND TRIMETHOPRIM [Suspect]
     Indication: ACNE
  2. ISOTRETINOIN [Concomitant]
  3. ACETAMINOPHEN [Concomitant]

REACTIONS (7)
  - Myalgia [None]
  - Hepatic steatosis [None]
  - Hepatitis [None]
  - Hepatic encephalopathy [None]
  - Dialysis [None]
  - Drug reaction with eosinophilia and systemic symptoms [None]
  - Acute hepatic failure [None]
